FAERS Safety Report 7685782-8 (Version None)
Quarter: 2011Q3

REPORT INFORMATION
  Report Type: 
  Country: None (occurrence: None)
  Receive Date: 20110815
  Receipt Date: 20110815
  Transmission Date: 20111222
  Serious: Yes (Hospitalization)
  Sender: FDA-Public Use
  Company Number: None

PATIENT
  Age: 67 Year
  Sex: Female
  Weight: 61.234 kg

DRUGS (2)
  1. GEODON [Suspect]
     Indication: DELUSION
     Dosage: 80 MG
     Route: 048
     Dates: start: 20060501, end: 20110812
  2. EXELON [Concomitant]
     Indication: DEMENTIA
     Dosage: 3 MG
     Route: 048
     Dates: start: 20060501, end: 20110812

REACTIONS (5)
  - DYSKINESIA [None]
  - HYPERHIDROSIS [None]
  - TREMOR [None]
  - GAIT DISTURBANCE [None]
  - RESTLESSNESS [None]
